FAERS Safety Report 12458364 (Version 1)
Quarter: 2016Q2

REPORT INFORMATION
  Report Type: Spontaneous
  Country: CA (occurrence: CA)
  Receive Date: 20160613
  Receipt Date: 20160613
  Transmission Date: 20160815
  Serious: Yes (Other)
  Sender: FDA-Public Use
  Company Number: CA-ROCHE-1670006

PATIENT
  Age: 51 Year
  Sex: Male

DRUGS (12)
  1. ADVAIR HFA [Concomitant]
     Active Substance: FLUTICASONE PROPIONATE\SALMETEROL XINAFOATE
  2. ALVESCO [Concomitant]
     Active Substance: CICLESONIDE
  3. XOLAIR [Suspect]
     Active Substance: OMALIZUMAB
     Route: 058
     Dates: start: 20160314
  4. XOLAIR [Suspect]
     Active Substance: OMALIZUMAB
     Route: 058
     Dates: start: 20160215
  5. XOLAIR [Suspect]
     Active Substance: OMALIZUMAB
     Route: 058
     Dates: start: 20130515
  6. ZITHROMAX [Concomitant]
     Active Substance: AZITHROMYCIN DIHYDRATE
  7. SPIRIVA [Concomitant]
     Active Substance: TIOTROPIUM BROMIDE MONOHYDRATE
  8. XOLAIR [Suspect]
     Active Substance: OMALIZUMAB
     Indication: ASTHMA
     Route: 058
     Dates: start: 20130218
  9. XOLAIR [Suspect]
     Active Substance: OMALIZUMAB
     Route: 058
     Dates: start: 20160509
  10. VENTOLIN [Concomitant]
     Active Substance: ALBUTEROL SULFATE
  11. SYMBICORT [Concomitant]
     Active Substance: BUDESONIDE\FORMOTEROL FUMARATE DIHYDRATE
  12. SINGULAIR [Concomitant]
     Active Substance: MONTELUKAST SODIUM

REACTIONS (12)
  - Head discomfort [Unknown]
  - Clostridium difficile infection [Unknown]
  - Injection site discomfort [Unknown]
  - Acne [Unknown]
  - Diplopia [Unknown]
  - Dysstasia [Unknown]
  - Dyspnoea [Unknown]
  - Basal cell carcinoma [Unknown]
  - Tremor [Unknown]
  - Influenza [Unknown]
  - Fatigue [Unknown]
  - Blood creatine phosphokinase increased [Recovered/Resolved]

NARRATIVE: CASE EVENT DATE: 20130218
